FAERS Safety Report 6786421-0 (Version None)
Quarter: 2010Q2

REPORT INFORMATION
  Report Type: 
  Country: None (occurrence: None)
  Receive Date: 20100623
  Receipt Date: 20100615
  Transmission Date: 20101027
  Serious: Yes (Other)
  Sender: FDA-Public Use
  Company Number: A0865272A

PATIENT
  Age: 50 Year
  Sex: Male

DRUGS (15)
  1. ADVAIR DISKUS 100/50 [Suspect]
     Indication: CHRONIC OBSTRUCTIVE PULMONARY DISEASE
     Dosage: 1PUFF TWICE PER DAY
     Route: 055
  2. SCOPOLAMINE [Concomitant]
     Route: 062
  3. CALAN [Concomitant]
  4. METOPROLOL TARTRATE [Concomitant]
  5. VENTOLIN [Concomitant]
  6. OXYCONTIN [Concomitant]
  7. LEXAPRO [Concomitant]
  8. UNKNOWN MEDICATION [Concomitant]
  9. UROXATRAL [Concomitant]
  10. VESICARE [Concomitant]
  11. MELOXICAM [Concomitant]
  12. SYNTHROID [Concomitant]
  13. WARFARIN [Concomitant]
  14. ZYRTEC [Concomitant]
  15. PREVACID [Concomitant]

REACTIONS (5)
  - ASTHMA [None]
  - DRUG INEFFECTIVE [None]
  - DYSPNOEA [None]
  - DYSPNOEA EXERTIONAL [None]
  - PRODUCT QUALITY ISSUE [None]
